FAERS Safety Report 8798379 (Version 2)
Quarter: 2015Q2

REPORT INFORMATION
  Report Type: Report from Study
  Country: US (occurrence: US)
  Receive Date: 20120920
  Receipt Date: 20150616
  Transmission Date: 20150821
  Serious: Yes (Death)
  Sender: FDA-Public Use
  Company Number: US-ROCHE-1125829

PATIENT
  Age: 63 Year
  Sex: Female

DRUGS (11)
  1. DEXAMETHASONE. [Concomitant]
     Active Substance: DEXAMETHASONE
  2. TAXOTERE [Concomitant]
     Active Substance: DOCETAXEL
     Route: 042
  3. ARANESP [Concomitant]
     Active Substance: DARBEPOETIN ALFA
     Route: 058
  4. DOXIL [Concomitant]
     Active Substance: DOXORUBICIN HYDROCHLORIDE
  5. TAXOTERE [Concomitant]
     Active Substance: DOCETAXEL
     Route: 065
  6. ABRAXANE [Concomitant]
     Active Substance: PACLITAXEL
  7. AVASTIN [Suspect]
     Active Substance: BEVACIZUMAB
     Route: 042
  8. AVASTIN [Suspect]
     Active Substance: BEVACIZUMAB
     Indication: BREAST CANCER FEMALE
     Route: 042
     Dates: start: 20060120
  9. AVASTIN [Suspect]
     Active Substance: BEVACIZUMAB
     Route: 042
  10. KYTRIL [Concomitant]
     Active Substance: GRANISETRON HYDROCHLORIDE
     Route: 065
  11. VITAMIN B12 [Concomitant]
     Active Substance: CYANOCOBALAMIN
     Route: 058

REACTIONS (2)
  - Off label use [Unknown]
  - Death [Fatal]

NARRATIVE: CASE EVENT DATE: 20060329
